FAERS Safety Report 4513542-5 (Version None)
Quarter: 2004Q4

REPORT INFORMATION
  Report Type: 
  Country: None (occurrence: None)
  Receive Date: 20041130
  Receipt Date: 20040414
  Transmission Date: 20050328
  Serious: No
  Sender: FDA-Public Use
  Company Number: US-GLAXOSMITHKLINE-A0507160A

PATIENT
  Age: 80 Year
  Sex: Female

DRUGS (3)
  1. WELLBUTRIN XL [Suspect]
     Dosage: 150MG PER DAY
     Route: 048
     Dates: start: 20040331
  2. SYNTHROID [Concomitant]
  3. ZESTRIL [Concomitant]

REACTIONS (2)
  - DYSARTHRIA [None]
  - TREMOR [None]
